FAERS Safety Report 9163306 (Version 1)
Quarter: 2013Q1

REPORT INFORMATION
  Report Type: Spontaneous
  Country: DE (occurrence: DE)
  Receive Date: 20130314
  Receipt Date: 20130314
  Transmission Date: 20140127
  Serious: Yes (Hospitalization)
  Sender: FDA-Public Use
  Company Number: DE-GLAXOSMITHKLINE-D0078721A

PATIENT
  Age: 27 Year
  Sex: Female

DRUGS (2)
  1. LAMICTAL [Suspect]
     Indication: EPILEPSY
     Dosage: 25MG PER DAY
     Route: 048
     Dates: start: 20130106, end: 20130207
  2. AMITRIPTYLIN [Concomitant]
     Indication: PAIN
     Dosage: 25MG PER DAY
     Route: 065
     Dates: start: 201212

REACTIONS (5)
  - Tubulointerstitial nephritis [Recovered/Resolved]
  - Renal failure acute [Recovered/Resolved]
  - Rash [Recovering/Resolving]
  - Hepatic steatosis [Recovering/Resolving]
  - Splenomegaly [Recovering/Resolving]
